FAERS Safety Report 12068449 (Version 1)
Quarter: 2016Q1

REPORT INFORMATION
  Report Type: Spontaneous
  Country: US (occurrence: US)
  Receive Date: 20160211
  Receipt Date: 20160211
  Transmission Date: 20160526
  Serious: No
  Sender: FDA-Public Use
  Company Number: US-SMITH AND NEPHEW, INC-2015SMT00364

PATIENT
  Age: 47 Year
  Sex: Female
  Weight: 91.16 kg

DRUGS (24)
  1. PROTONIX [Concomitant]
     Active Substance: PANTOPRAZOLE SODIUM
  2. REGRANEX [Suspect]
     Active Substance: BECAPLERMIN
     Indication: WOUND
     Dosage: UNK UNK, 1X/DAY
     Route: 061
     Dates: start: 20150915
  3. BENADRYL [Concomitant]
     Active Substance: DIPHENHYDRAMINE HYDROCHLORIDE
  4. DIFLUCAN [Concomitant]
     Active Substance: FLUCONAZOLE
  5. IMODIUM [Concomitant]
     Active Substance: LOPERAMIDE HYDROCHLORIDE
  6. NICOTINE TRANSDERMAL SYSTEM [Concomitant]
     Active Substance: NICOTINE
  7. VITAMIN D3 [Concomitant]
     Active Substance: CHOLECALCIFEROL
  8. FLONASE [Concomitant]
     Active Substance: FLUTICASONE PROPIONATE
  9. LEVAQUIN [Concomitant]
     Active Substance: LEVOFLOXACIN
  10. LISINOPRIL. [Concomitant]
     Active Substance: LISINOPRIL
  11. LOPRESSOR [Concomitant]
     Active Substance: METOPROLOL TARTRATE
  12. MULTIVITAMIN [Concomitant]
     Active Substance: VITAMINS
  13. ATIVAN [Concomitant]
     Active Substance: LORAZEPAM
  14. DUONEB [Concomitant]
     Active Substance: ALBUTEROL SULFATE\IPRATROPIUM BROMIDE
  15. INSULIN 70/30 [Concomitant]
     Active Substance: INSULIN HUMAN
  16. SEROQUEL [Concomitant]
     Active Substance: QUETIAPINE FUMARATE
  17. COLACE [Concomitant]
     Active Substance: DOCUSATE SODIUM
  18. FIBERCON [Concomitant]
     Active Substance: CALCIUM POLYCARBOPHIL
  19. PLAVIX [Concomitant]
     Active Substance: CLOPIDOGREL BISULFATE
  20. ZOCOR [Concomitant]
     Active Substance: SIMVASTATIN
  21. ALBUTEROL. [Concomitant]
     Active Substance: ALBUTEROL
  22. FUROSEMIDE. [Concomitant]
     Active Substance: FUROSEMIDE
  23. MORPHINE SULFATE. [Concomitant]
     Active Substance: MORPHINE SULFATE
     Dosage: 2 DOSAGE UNITS, UNK
  24. GABAPENTIN. [Concomitant]
     Active Substance: GABAPENTIN

REACTIONS (2)
  - Application site pain [Unknown]
  - Application site pruritus [Recovering/Resolving]

NARRATIVE: CASE EVENT DATE: 20150915
